FAERS Safety Report 12528236 (Version 1)
Quarter: 2016Q3

REPORT INFORMATION
  Report Type: Spontaneous
  Country: SI (occurrence: SI)
  Receive Date: 20160705
  Receipt Date: 20160705
  Transmission Date: 20161109
  Serious: Yes (Life-Threatening)
  Sender: FDA-Public Use
  Company Number: SI-TEVA-671271ISR

PATIENT
  Age: 47 Year
  Sex: Male

DRUGS (5)
  1. REGLAN 10 MG TABLETE [Concomitant]
     Dosage: HALF AN HOUR BEFORE MEAL
  2. CAPECITABINE TEVA 500 MG [Suspect]
     Active Substance: CAPECITABINE
     Indication: COLON CANCER
     Dosage: 5000 MILLIGRAM DAILY; 2500 MG PER 12H - 14 DAY CYCLE
     Route: 048
     Dates: start: 20160226, end: 20160524
  3. LINOLA UREA [Concomitant]
     Indication: THERAPEUTIC SKIN CARE TOPICAL
     Dosage: 2X PER DAY, MORE IF NECESSARY
     Route: 003
  4. NOLPAZA 40MG [Concomitant]
     Dosage: IN THE MORNINGS
  5. LOPACUT 2 MG [Concomitant]
     Indication: DIARRHOEA
     Dosage: 2 TBL.+ 1 TBL./DAY, AS NECESSARY

REACTIONS (3)
  - Anaphylactic reaction [Recovered/Resolved]
  - Fall [None]
  - Anal incontinence [None]

NARRATIVE: CASE EVENT DATE: 20160524
